FAERS Safety Report 5820635-9 (Version None)
Quarter: 2008Q3

REPORT INFORMATION
  Report Type: 
  Country: None (occurrence: None)
  Receive Date: 20080724
  Receipt Date: 20071218
  Transmission Date: 20090109
  Serious: Yes (Hospitalization)
  Sender: FDA-Public Use
  Company Number: A0699521A

PATIENT
  Age: 54 Year
  Sex: Female

DRUGS (3)
  1. AVANDIA [Suspect]
     Indication: GLUCOSE TOLERANCE IMPAIRED
     Dosage: 2MG UNKNOWN
     Route: 048
     Dates: start: 20070801, end: 20071216
  2. ANTI-CHOLESTEROL MEDICATION [Concomitant]
  3. ANXIOLYTIC [Concomitant]

REACTIONS (1)
  - CARDIAC FAILURE CONGESTIVE [None]
